FAERS Safety Report 16326358 (Version 1)
Quarter: 2019Q2

REPORT INFORMATION
  Report Type: Report from Study
  Country: CA (occurrence: CA)
  Receive Date: 20190517
  Receipt Date: 20190517
  Transmission Date: 20190711
  Serious: Yes (Other)
  Sender: FDA-Public Use
  Company Number: CA-JNJFOC-20190510358

PATIENT
  Age: 23 Year
  Sex: Male

DRUGS (1)
  1. TREMFYA [Suspect]
     Active Substance: GUSELKUMAB
     Indication: PSORIASIS
     Dosage: STRENGTH = 100 MG
     Route: 058
     Dates: start: 20190205

REACTIONS (3)
  - Axillary mass [Unknown]
  - Axillary pain [Unknown]
  - Skin infection [Unknown]

NARRATIVE: CASE EVENT DATE: 20190503
